FAERS Safety Report 8333021-7 (Version None)
Quarter: 2012Q2

REPORT INFORMATION
  Report Type: 
  Country: None (occurrence: None)
  Receive Date: 20120503
  Receipt Date: 20120424
  Transmission Date: 20120825
  Serious: Yes (Hospitalization)
  Sender: FDA-Public Use
  Company Number: PHHY2012BR036175

PATIENT
  Sex: Female
  Weight: 49 kg

DRUGS (4)
  1. DIOVAN [Suspect]
     Indication: HYPERTENSION
     Dosage: 1 DF (80 MG), DAILY
  2. CALCIUM [Concomitant]
     Indication: OSTEOPENIA
  3. SIMVASTATIN [Concomitant]
     Indication: BLOOD CHOLESTEROL INCREASED
  4. VITAMIN D [Concomitant]
     Indication: OSTEOPENIA

REACTIONS (3)
  - SMALL INTESTINE CARCINOMA [None]
  - ASTHENIA [None]
  - WEIGHT DECREASED [None]
